FAERS Safety Report 5194666-9 (Version None)
Quarter: 2006Q4

REPORT INFORMATION
  Report Type: 
  Country: None (occurrence: None)
  Receive Date: 20061222
  Receipt Date: 20061222
  Transmission Date: 20070319
  Serious: Yes (Hospitalization)
  Sender: FDA-Public Use
  Company Number: None

PATIENT
  Sex: Female
  Weight: 98.8842 kg

DRUGS (5)
  1. TEMOZOLOMIDE, SCHERING [Suspect]
     Indication: METASTATIC MALIGNANT MELANOMA
     Dosage: 315 MG   QDX7, Q O WK  PO
     Route: 048
     Dates: start: 20060426, end: 20060502
  2. TEMOZOLOMIDE, SCHERING [Suspect]
     Indication: METASTATIC MALIGNANT MELANOMA
     Dosage: 315 MG   QDX7, Q O WK  PO
     Route: 048
     Dates: start: 20060510, end: 20060515
  3. TEMOZOLOMIDE,  SCHERING [Suspect]
  4. TEMOZOLOMIDE,   SCHERING [Suspect]
  5. SUNITIB L-MALATE SALT, PFIZER [Suspect]
     Indication: METASTATIC MALIGNANT MELANOMA
     Dosage: 25 MG  D8-28, Q28D   PO
     Route: 048
     Dates: start: 20060503, end: 20060521

REACTIONS (4)
  - INFECTION [None]
  - LYMPHOEDEMA [None]
  - RED BLOOD CELL COUNT DECREASED [None]
  - WHITE BLOOD CELL COUNT DECREASED [None]
